FAERS Safety Report 5121749-1 (Version None)
Quarter: 2006Q4

REPORT INFORMATION
  Report Type: 
  Country: None (occurrence: None)
  Receive Date: 20061006
  Receipt Date: 20060814
  Transmission Date: 20070319
  Serious: Yes (Death)
  Sender: FDA-Public Use
  Company Number: GB-ROCHE-459524

PATIENT
  Age: 23 Year
  Sex: Male

DRUGS (2)
  1. ALL-TRANS-RETINOIC ACID [Suspect]
     Route: 048
  2. CHEMOTHERAPY NOS [Suspect]
     Route: 065

REACTIONS (2)
  - ACUTE GRAFT VERSUS HOST DISEASE IN LIVER [None]
  - PLASMACYTOMA [None]
